FAERS Safety Report 14024463 (Version 1)
Quarter: 2017Q3

REPORT INFORMATION
  Report Type: Spontaneous
  Country: JP (occurrence: JP)
  Receive Date: 20170929
  Receipt Date: 20170929
  Transmission Date: 20171128
  Serious: Yes (Death)
  Sender: FDA-Public Use
  Company Number: JP-BAYER-2017-182569

PATIENT
  Age: 90 Year
  Sex: Male
  Weight: 59.3 kg

DRUGS (5)
  1. XARELTO [Suspect]
     Active Substance: RIVAROXABAN
     Indication: ATRIAL FIBRILLATION
     Dosage: UNK
  2. BISOPROLOL FUMARATE. [Concomitant]
     Active Substance: BISOPROLOL FUMARATE
     Dosage: DAILY DOSE 1.25 MG
     Route: 048
  3. PITAVASTATIN CALCIUM [Concomitant]
     Active Substance: PITAVASTATIN CALCIUM
     Indication: DYSLIPIDAEMIA
     Dosage: DAILY DOSE 2 MG
     Route: 048
  4. BAYASPIRIN 100 MG [Suspect]
     Active Substance: ASPIRIN
     Indication: AORTIC VALVE STENOSIS
     Dosage: DAILY DOSE 100 MG
     Route: 048
  5. POLAPREZINC [Concomitant]
     Active Substance: POLAPREZINC
     Dosage: DAILY DOSE 75 MG
     Route: 048

REACTIONS (2)
  - Subdural haematoma [Fatal]
  - Brain herniation [Fatal]

NARRATIVE: CASE EVENT DATE: 20170810
